FAERS Safety Report 20680975 (Version 1)
Quarter: 2022Q2

REPORT INFORMATION
  Report Type: Report from Study
  Country: US (occurrence: US)
  Receive Date: 20220406
  Receipt Date: 20220406
  Transmission Date: 20220721
  Serious: No
  Sender: FDA-Public Use
  Company Number: US-NOVARTISTESTPH-NVSC2022US078434

PATIENT
  Sex: Female

DRUGS (1)
  1. PROMACTA [Suspect]
     Active Substance: ELTROMBOPAG OLAMINE
     Indication: Product used for unknown indication
     Dosage: 50 MG (TAKE 1 TABLET BY MOUTH ONCE DAILY ON AN EMPTY STOMACH 1 HOUR BEFORE OR 2 HOURS AFTER A MEAL)
     Route: 048

REACTIONS (2)
  - Vertigo [Unknown]
  - Diarrhoea [Unknown]
